FAERS Safety Report 13815686 (Version 6)
Quarter: 2018Q2

REPORT INFORMATION
  Report Type: Report from Study
  Country: GB (occurrence: GB)
  Receive Date: 20170731
  Receipt Date: 20180406
  Transmission Date: 20180711
  Serious: Yes (Hospitalization, Other)
  Sender: FDA-Public Use
  Company Number: GB-BRISTOL-MYERS SQUIBB COMPANY-BMS-2017-046749

PATIENT
  Sex: Female

DRUGS (1)
  1. ABATACEPT [Suspect]
     Active Substance: ABATACEPT
     Indication: RHEUMATOID ARTHRITIS
     Dosage: 125 MG, QWK
     Route: 058
     Dates: start: 20170104

REACTIONS (6)
  - Musculoskeletal stiffness [Unknown]
  - Impaired gastric emptying [Unknown]
  - Gastrointestinal tube insertion [Unknown]
  - Adverse event [Unknown]
  - Pneumonia aspiration [Unknown]
  - Pulmonary fibrosis [Unknown]
